FAERS Safety Report 6259143-2 (Version None)
Quarter: 2009Q3

REPORT INFORMATION
  Report Type: 
  Country: None (occurrence: None)
  Receive Date: 20090707
  Receipt Date: 20090624
  Transmission Date: 20100115
  Serious: Yes (Hospitalization)
  Sender: FDA-Public Use
  Company Number: AU-ASTRAZENECA-2007AP06391

PATIENT
  Age: 14969 Day
  Sex: Female
  Weight: 78 kg

DRUGS (10)
  1. PRILOSEC [Suspect]
     Indication: REFLUX GASTRITIS
     Route: 048
     Dates: start: 20070513
  2. AMOXIL [Interacting]
     Indication: DENTAL CARE
     Route: 048
     Dates: start: 20070920, end: 20070920
  3. CALTRATE [Concomitant]
     Route: 048
     Dates: start: 20070513
  4. COLOXYL WITH SENNA [Concomitant]
     Indication: CONSTIPATION
     Dosage: AS REQUIRED
     Route: 048
     Dates: start: 20070513
  5. FLUCONAZOLE [Concomitant]
     Route: 065
     Dates: start: 20070513
  6. NORDETTE-28 [Concomitant]
     Indication: CONTRACEPTION
     Route: 065
     Dates: start: 20070513
  7. NASONEX [Concomitant]
     Route: 045
     Dates: start: 20070513
  8. PERINDOPRIL [Concomitant]
     Indication: BLOOD PRESSURE
     Route: 048
     Dates: start: 20070513
  9. PREDNISONE TAB [Concomitant]
     Indication: AUTOIMMUNE DISORDER
     Route: 065
     Dates: start: 20070513
  10. CYCLOPHOSPHAMIDE [Concomitant]
     Indication: CHEMOTHERAPY
     Route: 065
     Dates: start: 20070513

REACTIONS (2)
  - DRUG INTERACTION [None]
  - ENTEROCOLITIS HAEMORRHAGIC [None]
